FAERS Safety Report 23251956 (Version 1)
Quarter: 2023Q4

REPORT INFORMATION
  Report Type: Spontaneous
  Country: US (occurrence: US)
  Receive Date: 20231201
  Receipt Date: 20231201
  Transmission Date: 20240110
  Serious: Yes (Hospitalization)
  Sender: FDA-Public Use
  Company Number: US-ELI_LILLY_AND_COMPANY-US202311012104

PATIENT
  Age: 51 Year
  Sex: Male

DRUGS (1)
  1. HUMULIN R [Suspect]
     Active Substance: INSULIN HUMAN
     Indication: Product used for unknown indication
     Dosage: 100 U, BID (80 TO 100 UNITS, TWICE A DAY)
     Route: 058

REACTIONS (2)
  - COVID-19 pneumonia [Recovered/Resolved]
  - Blood glucose increased [Unknown]
